FAERS Safety Report 5024917-2 (Version None)
Quarter: 2006Q2

REPORT INFORMATION
  Report Type: 
  Country: None (occurrence: None)
  Receive Date: 20060426
  Receipt Date: 20060222
  Transmission Date: 20061013
  Serious: Yes (Other)
  Sender: FDA-Public Use
  Company Number: 2006026947

PATIENT
  Age: 76 Year
  Sex: Female
  Weight: 54.4316 kg

DRUGS (5)
  1. LYRICA [Suspect]
     Indication: NEUROPATHY
     Dosage: 50 MG, 1 D)
     Dates: start: 20060201
  2. FOSAMAX [Concomitant]
  3. LISINOPRIL [Concomitant]
  4. GLUCOTROL [Concomitant]
  5. PREMPRO [Concomitant]

REACTIONS (1)
  - TREMOR [None]
